FAERS Safety Report 5841996-0 (Version None)
Quarter: 2008Q3

REPORT INFORMATION
  Report Type: 
  Country: None (occurrence: None)
  Receive Date: 20080812
  Receipt Date: 20051018
  Transmission Date: 20090109
  Serious: Yes (Hospitalization)
  Sender: FDA-Public Use
  Company Number: US-MERCK-0506USA03969B1

PATIENT
  Age: 0 Day
  Sex: Male
  Weight: 1 kg

DRUGS (4)
  1. SINGULAIR [Suspect]
     Indication: ASTHMA
     Route: 064
  2. ZYRTEC [Concomitant]
     Route: 064
  3. VITAMINS (UNSPECIFIED) [Concomitant]
     Route: 064
  4. ALBUTEROL [Concomitant]
     Route: 064

REACTIONS (3)
  - FOETAL GROWTH RETARDATION [None]
  - FOETAL HYPOKINESIA [None]
  - PREMATURE BABY [None]
